FAERS Safety Report 22919451 (Version 5)
Quarter: 2024Q4

REPORT INFORMATION
  Report Type: Report from Study
  Country: TW (occurrence: TW)
  Receive Date: 20230908
  Receipt Date: 20241004
  Transmission Date: 20250115
  Serious: Yes (Death, Hospitalization)
  Sender: BOEHRINGER INGELHEIM
  Company Number: TW-BoehringerIngelheim-2023-BI-248557

PATIENT
  Age: 66 Year
  Sex: Male
  Weight: 65 kg

DRUGS (2)
  1. OFEV [Suspect]
     Active Substance: NINTEDANIB
     Indication: Idiopathic pulmonary fibrosis
     Dosage: UNKNOWN
     Route: 048
     Dates: start: 202304, end: 202408
  2. OFEV [Suspect]
     Active Substance: NINTEDANIB
     Route: 048
     Dates: end: 20230822

REACTIONS (10)
  - Death [Fatal]
  - Dyspnoea [Recovering/Resolving]
  - Cholecystectomy [Recovering/Resolving]
  - Ascites [Not Recovered/Not Resolved]
  - Oedema peripheral [Recovering/Resolving]
  - Ascites [Not Recovered/Not Resolved]
  - Varices oesophageal [Not Recovered/Not Resolved]
  - Dysphagia [Not Recovered/Not Resolved]
  - Diarrhoea [Recovering/Resolving]
  - Fatigue [Not Recovered/Not Resolved]

NARRATIVE: CASE EVENT DATE: 20230101
